FAERS Safety Report 6856396-4 (Version None)
Quarter: 2010Q3

REPORT INFORMATION
  Report Type: 
  Country: None (occurrence: None)
  Receive Date: 20100719
  Receipt Date: 20100707
  Transmission Date: 20110219
  Serious: Yes (Other)
  Sender: FDA-Public Use
  Company Number: GB-PFIZER INC-2010072649

PATIENT
  Sex: Male

DRUGS (1)
  1. SPIRONOLACTONE [Suspect]
     Indication: CARDIAC FAILURE
     Route: 048

REACTIONS (1)
  - DYSPNOEA [None]
